FAERS Safety Report 8844602 (Version 1)
Quarter: 2012Q4

REPORT INFORMATION
  Report Type: Spontaneous
  Country: US (occurrence: None)
  Receive Date: 20121012
  Receipt Date: 20121012
  Transmission Date: 20130627
  Serious: Yes (Other)
  Sender: FDA-Public Use
  Company Number: ADR-2012-01852

PATIENT
  Age: 46 Year
  Sex: Female

DRUGS (1)
  1. BACLOFEN INTRATHECAL (BACLOFEN INJECTION) [Suspect]
     Indication: SPASTICITY

REACTIONS (5)
  - Muscle spasticity [None]
  - Muscular weakness [None]
  - Cerebrospinal fluid leakage [None]
  - Device breakage [None]
  - Spinal cord compression [None]
